FAERS Safety Report 20245811 (Version 2)
Quarter: 2022Q1

REPORT INFORMATION
  Report Type: Spontaneous
  Country: ES (occurrence: ES)
  Receive Date: 20211229
  Receipt Date: 20220209
  Transmission Date: 20220424
  Serious: Yes (Other)
  Sender: FDA-Public Use
  Company Number: ES-ROCHE-2981441

PATIENT
  Age: 75 Year
  Sex: Male

DRUGS (17)
  1. BEVACIZUMAB [Suspect]
     Active Substance: BEVACIZUMAB
     Indication: Non-small cell lung cancer
     Dosage: 525 MILLIGRAM
     Route: 042
     Dates: start: 20211026
  2. ATEZOLIZUMAB [Suspect]
     Active Substance: ATEZOLIZUMAB
     Indication: Non-small cell lung cancer
     Route: 041
     Dates: start: 20211026
  3. CARBOPLATIN [Suspect]
     Active Substance: CARBOPLATIN
     Indication: Non-small cell lung cancer
     Route: 065
     Dates: start: 20211026
  4. PACLITAXEL [Suspect]
     Active Substance: PACLITAXEL
     Indication: Non-small cell lung cancer
     Dosage: 253 MILLIGRAM
     Route: 065
     Dates: start: 20211026
  5. CONDROSAN [Concomitant]
  6. ACETAMINOPHEN [Concomitant]
     Active Substance: ACETAMINOPHEN
  7. DUTASTERIDE\TAMSULOSIN [Concomitant]
     Active Substance: DUTASTERIDE\TAMSULOSIN
  8. BISOPROLOL [Concomitant]
     Active Substance: BISOPROLOL
  9. VALACYCLOVIR HYDROCHLORIDE [Concomitant]
     Active Substance: VALACYCLOVIR HYDROCHLORIDE
  10. TRAMADOL [Concomitant]
     Active Substance: TRAMADOL
  11. FOSTER [Concomitant]
     Active Substance: BECLOMETHASONE\FORMOTEROL
  12. BROMAZEPAM [Concomitant]
     Active Substance: BROMAZEPAM
  13. FUROSEMIDE [Concomitant]
     Active Substance: FUROSEMIDE
  14. FENTANYL [Concomitant]
     Active Substance: FENTANYL
  15. SINTROM [Concomitant]
     Active Substance: ACENOCOUMAROL
     Dosage: UNK
     Dates: start: 20201201
  16. IBANDRONIC ACID [Concomitant]
     Active Substance: IBANDRONIC ACID
     Dosage: UNK
     Dates: start: 20211212
  17. COVID-19 VACCINE [Concomitant]
     Dosage: UNK
     Dates: start: 20211110, end: 20211110

REACTIONS (3)
  - Neurotoxicity [Recovered/Resolved]
  - Nausea [Recovered/Resolved]
  - Herpes zoster [Recovered/Resolved]

NARRATIVE: CASE EVENT DATE: 20211115
